FAERS Safety Report 9784911 (Version 1)
Quarter: 2013Q4

REPORT INFORMATION
  Report Type: Spontaneous
  Country: GB (occurrence: GB)
  Receive Date: 20131227
  Receipt Date: 20131227
  Transmission Date: 20140711
  Serious: Yes (Hospitalization)
  Sender: FDA-Public Use
  Company Number: GB-ROCHE-1324660

PATIENT
  Age: 57 Year
  Sex: Male
  Weight: 93.7 kg

DRUGS (1)
  1. CAPECITABINE [Suspect]
     Indication: RECTAL ADENOCARCINOMA
     Route: 048
     Dates: start: 20131016, end: 20131104

REACTIONS (4)
  - Abdominal pain [Recovering/Resolving]
  - Diarrhoea [Recovered/Resolved]
  - Inflammatory marker increased [Unknown]
  - Crohn^s disease [Recovered/Resolved with Sequelae]
